FAERS Safety Report 6765743-3 (Version None)
Quarter: 2010Q2

REPORT INFORMATION
  Report Type: 
  Country: None (occurrence: None)
  Receive Date: 20100611
  Receipt Date: 20100602
  Transmission Date: 20101027
  Serious: Yes (Life-Threatening, Other)
  Sender: FDA-Public Use
  Company Number: CA-NAPPMUNDI-CAN-2010-0001401

PATIENT
  Age: 50 Year
  Sex: Female

DRUGS (2)
  1. DILAUDID [Suspect]
     Indication: DRUG USE FOR UNKNOWN INDICATION
     Dosage: UNK
     Route: 030
  2. DILAUDID [Suspect]
     Dosage: UNK
     Route: 030

REACTIONS (2)
  - ASTHENIA [None]
  - MALAISE [None]
